FAERS Safety Report 6091529-1 (Version None)
Quarter: 2009Q1

REPORT INFORMATION
  Report Type: 
  Country: None (occurrence: None)
  Receive Date: 20090225
  Receipt Date: 20090218
  Transmission Date: 20090719
  Serious: Yes (Hospitalization, Other)
  Sender: FDA-Public Use
  Company Number: PHHY2009NL05862

PATIENT
  Sex: Male
  Weight: 73 kg

DRUGS (6)
  1. EXELON [Suspect]
     Indication: HALLUCINATION
     Dosage: 3 MG, QD
     Route: 048
  2. EXELON [Suspect]
     Dosage: 4.5 MG, QD
     Route: 048
     Dates: start: 20090109, end: 20090122
  3. CARBASALATE CALCIUM [Concomitant]
  4. ATORVASTATIN [Concomitant]
  5. LOSARTAN [Concomitant]
  6. NITROGLYCERIN [Concomitant]

REACTIONS (7)
  - ATRIAL FIBRILLATION [None]
  - ATRIOVENTRICULAR BLOCK [None]
  - BODY TEMPERATURE INCREASED [None]
  - CARDIOMEGALY [None]
  - HYPONATRAEMIA [None]
  - RESPIRATORY TRACT INFECTION [None]
  - SINUS BRADYCARDIA [None]
